FAERS Safety Report 13841170 (Version 4)
Quarter: 2018Q4

REPORT INFORMATION
  Report Type: Spontaneous
  Country: JP (occurrence: JP)
  Receive Date: 20170807
  Receipt Date: 20181227
  Transmission Date: 20190204
  Serious: Yes (Life-Threatening, Hospitalization, Other)
  Sender: FDA-Public Use
  Company Number: JP-SA-2017SA119715

PATIENT
  Age: 82 Year
  Sex: Female

DRUGS (5)
  1. PREDNISOLONE. [Concomitant]
     Active Substance: PREDNISOLONE
     Indication: POLYARTERITIS NODOSA
     Dosage: 20 MG,QD
     Route: 065
  2. CLOPIDOGREL HYDROGEN SULFATE [Concomitant]
     Active Substance: CLOPIDOGREL BISULFATE
     Indication: ANTIPLATELET THERAPY
     Dosage: 75 MG, QD
     Route: 065
  3. METRONIDAZOLE. [Suspect]
     Active Substance: METRONIDAZOLE
     Indication: ABSCESS LIMB
     Dosage: 1500 MG, QD
     Route: 065
  4. METRONIDAZOLE. [Suspect]
     Active Substance: METRONIDAZOLE
     Indication: CLOSTRIDIUM DIFFICILE INFECTION
  5. PLAVIX [Suspect]
     Active Substance: CLOPIDOGREL BISULFATE
     Indication: ANTIPLATELET THERAPY
     Route: 065

REACTIONS (10)
  - Wound dehiscence [Unknown]
  - Wound haematoma [Unknown]
  - Drug ineffective [Unknown]
  - Wound haemorrhage [Recovering/Resolving]
  - Clostridium difficile infection [Unknown]
  - Skin necrosis [Unknown]
  - Bacterial test positive [Unknown]
  - Polyarteritis nodosa [Recovering/Resolving]
  - Condition aggravated [Unknown]
  - Wound abscess [Recovering/Resolving]
